FAERS Safety Report 23718982 (Version 2)
Quarter: 2024Q2

REPORT INFORMATION
  Report Type: Spontaneous
  Country: US (occurrence: US)
  Receive Date: 20240408
  Receipt Date: 20240411
  Transmission Date: 20240715
  Serious: No
  Sender: FDA-Public Use
  Company Number: US-JNJFOC-20240343622

PATIENT
  Sex: Female

DRUGS (1)
  1. MENS ROGAINE EXTRA STRENGTH [Suspect]
     Active Substance: MINOXIDIL
     Indication: Alopecia
     Dosage: A DROPPER FULL ONCE  A DAY
     Route: 061

REACTIONS (3)
  - Application site pain [Recovering/Resolving]
  - Product use issue [Unknown]
  - Intentional product misuse [Unknown]
